FAERS Safety Report 19483024 (Version 1)
Quarter: 2021Q3

REPORT INFORMATION
  Report Type: Spontaneous
  Country: US (occurrence: US)
  Receive Date: 20210701
  Receipt Date: 20210701
  Transmission Date: 20211014
  Serious: No
  Sender: FDA-Public Use
  Company Number: US-TEVA-2021-US-1928258

PATIENT
  Age: 80 Year
  Sex: Female

DRUGS (1)
  1. QVAR REDIHALER [Suspect]
     Active Substance: BECLOMETHASONE DIPROPIONATE
     Dosage: DOSAGE FORM: INHALATION ? AEROSOL
     Route: 065

REACTIONS (3)
  - Oropharyngeal discomfort [Unknown]
  - Device delivery system issue [Unknown]
  - Cough [Unknown]

NARRATIVE: CASE EVENT DATE: 202106
